FAERS Safety Report 6892814-3 (Version None)
Quarter: 2010Q3

REPORT INFORMATION
  Report Type: 
  Country: None (occurrence: None)
  Receive Date: 20100731
  Receipt Date: 20080926
  Transmission Date: 20110219
  Serious: No
  Sender: FDA-Public Use
  Company Number: US-PFIZER INC-2008078258

PATIENT
  Sex: Female

DRUGS (2)
  1. FLAGYL I.V. [Suspect]
     Route: 042
     Dates: start: 20080401
  2. FLAGYL [Suspect]
     Route: 048
     Dates: start: 20080101

REACTIONS (2)
  - HYPOAESTHESIA [None]
  - PARAESTHESIA [None]
